FAERS Safety Report 16390746 (Version 3)
Quarter: 2020Q3

REPORT INFORMATION
  Report Type: Spontaneous
  Country: JP (occurrence: JP)
  Receive Date: 20190604
  Receipt Date: 20200713
  Transmission Date: 20201102
  Serious: Yes (Other)
  Sender: FDA-Public Use
  Company Number: PHJP2017JP009372

PATIENT
  Age: 37 Year
  Sex: Female

DRUGS (9)
  1. MAGMITT [Concomitant]
     Active Substance: MAGNESIUM OXIDE
     Indication: CONSTIPATION
     Dosage: 330 MG, TID
     Route: 048
     Dates: start: 20160606, end: 20160608
  2. FOLIC ACID. [Concomitant]
     Active Substance: FOLIC ACID
     Indication: EPILEPSY
     Dosage: 5 MG, UNK
     Route: 048
  3. UTEMERIN [Concomitant]
     Active Substance: RITODRINE
     Indication: PREMATURE DELIVERY
     Dosage: 5 MG, TID
     Route: 048
     Dates: start: 20160418
  4. MAGSENT [Concomitant]
     Active Substance: DEXTROSE\MAGNESIUM SULFATE HEPTAHYDRATE
     Indication: PREMATURE DELIVERY
     Dosage: 10 ML/H TO 5 ML/H, UNK
     Route: 041
     Dates: start: 20160526, end: 20160630
  5. CEFAZOLIN SODIUM. [Concomitant]
     Active Substance: CEFAZOLIN SODIUM
     Indication: PRODUCT USED FOR UNKNOWN INDICATION
     Dosage: UNK
     Route: 065
  6. TEGRETOL [Suspect]
     Active Substance: CARBAMAZEPINE
     Indication: TEMPORAL LOBE EPILEPSY
  7. MAGSENT [Concomitant]
     Active Substance: DEXTROSE\MAGNESIUM SULFATE HEPTAHYDRATE
     Indication: FOETAL ARRHYTHMIA
  8. MAGNESIUM [Suspect]
     Active Substance: MAGNESIUM
     Indication: LONG QT SYNDROME
     Dosage: 1 G,QH
     Route: 065
  9. TEGRETOL [Suspect]
     Active Substance: CARBAMAZEPINE
     Indication: EPILEPSY
     Dosage: 100 MG, UNK
     Route: 048

REACTIONS (4)
  - Premature delivery [Unknown]
  - Live birth [Unknown]
  - Long QT syndrome [Recovering/Resolving]
  - Exposure during pregnancy [Recovered/Resolved with Sequelae]

NARRATIVE: CASE EVENT DATE: 20160629
